FAERS Safety Report 8870413 (Version 1)
Quarter: 2012Q4

REPORT INFORMATION
  Report Type: 
  Country: US (occurrence: US)
  Receive Date: 20121026
  Receipt Date: 20121026
  Transmission Date: 20130627
  Serious: No
  Sender: FDA-Public Use
  Company Number: US-AMGEN-USASP2012047205

PATIENT
  Age: 46 Year
  Sex: Female
  Weight: 57.6 kg

DRUGS (6)
  1. ENBREL [Suspect]
     Indication: PRODUCT USED FOR UNKNOWN INDICATION
     Dosage: 50 mg, qwk
     Route: 058
  2. INDOMETHACIN                       /00003801/ [Concomitant]
     Dosage: 75 mg, UNK
  3. FISH OIL [Concomitant]
  4. VITAMIN D /00107901/ [Concomitant]
     Dosage: 1000 unit, UNK
  5. VITAMINS                           /90003601/ [Concomitant]
     Dosage: UNK
  6. METHOTREXATE [Concomitant]
     Dosage: 1 GM, UNK

REACTIONS (1)
  - Drug ineffective [Unknown]
